FAERS Safety Report 14760574 (Version 5)
Quarter: 2019Q1

REPORT INFORMATION
  Report Type: Spontaneous
  Country: US (occurrence: US)
  Receive Date: 20180414
  Receipt Date: 20190115
  Transmission Date: 20190417
  Serious: Yes (Other)
  Sender: FDA-Public Use
  Company Number: US-JNJFOC-20180401577

PATIENT
  Age: 19 Year
  Sex: Female
  Weight: 83 kg

DRUGS (3)
  1. REMICADE [Suspect]
     Active Substance: INFLIXIMAB
     Indication: CROHN^S DISEASE
     Route: 042
     Dates: start: 20180129, end: 20180326
  2. REMICADE [Suspect]
     Active Substance: INFLIXIMAB
     Indication: CROHN^S DISEASE
     Route: 042
     Dates: start: 2018
  3. REMICADE [Suspect]
     Active Substance: INFLIXIMAB
     Indication: CROHN^S DISEASE
     Dosage: ALSO REPORTED AS 800 MG
     Route: 042
     Dates: start: 20171023, end: 20180129

REACTIONS (5)
  - Suspected product contamination [Unknown]
  - Drug level below therapeutic [Unknown]
  - Infusion related reaction [Recovered/Resolved]
  - Anaphylactic reaction [Recovered/Resolved]
  - Drug specific antibody present [Unknown]

NARRATIVE: CASE EVENT DATE: 20180129
